FAERS Safety Report 4793366-4 (Version None)
Quarter: 2005Q4

REPORT INFORMATION
  Report Type: 
  Country: None (occurrence: None)
  Receive Date: 20051005
  Receipt Date: 20050916
  Transmission Date: 20060501
  Serious: Yes (Other)
  Sender: FDA-Public Use
  Company Number: USA0509108423

PATIENT
  Age: 65 Year
  Sex: Female

DRUGS (3)
  1. FORTEO [Suspect]
     Indication: OSTEOPOROSIS
     Dosage: 20 UG DAY
     Dates: start: 20050714
  2. OXYGEN [Concomitant]
  3. FOSAMAX [Concomitant]

REACTIONS (6)
  - ARRHYTHMIA [None]
  - BLISTER [None]
  - CONDITION AGGRAVATED [None]
  - DERMATITIS CONTACT [None]
  - DIZZINESS [None]
  - POST PROCEDURAL COMPLICATION [None]
